FAERS Safety Report 8562424-0 (Version None)
Quarter: 2012Q3

REPORT INFORMATION
  Report Type: 
  Country: None (occurrence: None)
  Receive Date: 20120802
  Receipt Date: 20120709
  Transmission Date: 20120928
  Serious: No
  Sender: FDA-Public Use
  Company Number: US-AMGEN-USASP2011060988

PATIENT
  Age: 20 Year
  Sex: Female
  Weight: 83.46 kg

DRUGS (3)
  1. ENBREL [Suspect]
     Dosage: 50 MG, QMO
  2. ENBREL [Suspect]
     Indication: RHEUMATOID ARTHRITIS
     Dosage: 50 MG, QWK
     Route: 058
     Dates: start: 20001212
  3. CELEBREX [Concomitant]
     Dosage: 200 MG, PRN
     Route: 048
     Dates: start: 20021201

REACTIONS (2)
  - MENSTRUATION IRREGULAR [None]
  - OLIGOMENORRHOEA [None]
